FAERS Safety Report 5011439-8 (Version None)
Quarter: 2006Q2

REPORT INFORMATION
  Report Type: 
  Country: None (occurrence: None)
  Receive Date: 20060524
  Receipt Date: 20060517
  Transmission Date: 20061013
  Serious: Yes (Hospitalization)
  Sender: FDA-Public Use
  Company Number: LTI2006A00121

PATIENT
  Age: 75 Year
  Sex: Male

DRUGS (6)
  1. ACTOS [Suspect]
     Indication: DIABETES MELLITUS NON-INSULIN-DEPENDENT
     Dosage: 30 MG (30 MG, 1 IN 1 D) ORAL
     Route: 048
     Dates: start: 20051015, end: 20060102
  2. FENOFIBRATE [Concomitant]
  3. COVERSYL (PERINDOPRIL) [Concomitant]
  4. MOLSIDOMINE (MOLSIDOMINE) [Concomitant]
  5. FUROSEMIDE [Concomitant]
  6. GLICLAZIDE (GLICLAZIDE) [Concomitant]

REACTIONS (4)
  - ECZEMA ASTEATOTIC [None]
  - ERYTHEMA [None]
  - OEDEMA PERIPHERAL [None]
  - RASH PRURITIC [None]
